FAERS Safety Report 5311716-7 (Version None)
Quarter: 2007Q2

REPORT INFORMATION
  Report Type: 
  Country: None (occurrence: None)
  Receive Date: 20070426
  Receipt Date: 20070426
  Transmission Date: 20071010
  Serious: Yes (Life-Threatening, Hospitalization)
  Sender: FDA-Public Use
  Company Number: None

PATIENT
  Sex: Female
  Weight: 79.3795 kg

DRUGS (2)
  1. MAXALT [Suspect]
     Indication: MIGRAINE
     Dosage: 10MG  2HRS UP TO 3 DAILY  PO
     Route: 048
     Dates: start: 19990701, end: 20050201
  2. RELPAX [Suspect]
     Indication: MIGRAINE
     Dosage: 40MG  2HRS UP TO 2 DAILY  PO
     Route: 048
     Dates: start: 20050201, end: 20070214

REACTIONS (4)
  - ANXIETY [None]
  - DYSPEPSIA [None]
  - HEADACHE [None]
  - MYOCARDIAL INFARCTION [None]
